FAERS Safety Report 5840377-3 (Version None)
Quarter: 2008Q3

REPORT INFORMATION
  Report Type: 
  Country: None (occurrence: None)
  Receive Date: 20080807
  Receipt Date: 20080729
  Transmission Date: 20090109
  Serious: Yes (Death, Hospitalization)
  Sender: FDA-Public Use
  Company Number: 2008AL006707

PATIENT
  Age: 77 Year
  Sex: Female
  Weight: 61.2356 kg

DRUGS (13)
  1. DIGOXIN [Suspect]
     Indication: ATRIAL FIBRILLATION
     Dosage: 0.125MG DAILY, PO
     Route: 048
     Dates: start: 20080207, end: 20080331
  2. CATAPRES [Concomitant]
  3. FOLIC ACID [Concomitant]
  4. PREDNISONE TAB [Concomitant]
  5. COUMADIN [Concomitant]
  6. FUROSEMIDE [Concomitant]
  7. METOLAZONE [Concomitant]
  8. METOPROLOL TARTRATE [Concomitant]
  9. CALCIUM [Concomitant]
  10. FERREX [Concomitant]
  11. POTASSIUM CHLORIDE [Concomitant]
  12. MEBARAL [Concomitant]
  13. HYDROCHLOROTHIAZIDE [Concomitant]

REACTIONS (2)
  - CARDIOGENIC SHOCK [None]
  - MYOCARDIAL INFARCTION [None]
